FAERS Safety Report 15567745 (Version 7)
Quarter: 2019Q1

REPORT INFORMATION
  Report Type: Report from Study
  Country: US (occurrence: US)
  Receive Date: 20181030
  Receipt Date: 20190305
  Transmission Date: 20190417
  Serious: Yes (Hospitalization)
  Sender: FDA-Public Use
  Company Number: US-ACTELION-A-NJ2017-158319

PATIENT
  Age: 69 Year
  Sex: Male
  Weight: 63.2 kg

DRUGS (22)
  1. CALCIUM VITAMIN D [Concomitant]
     Active Substance: CALCIUM\VITAMIN D
     Dosage: UNK
     Dates: start: 2015
  2. UPTRAVI [Suspect]
     Active Substance: SELEXIPAG
     Indication: PULMONARY ARTERIAL HYPERTENSION
     Dosage: 800 MCG, BID
     Route: 048
     Dates: start: 20170818
  3. AMITRIPTYLINE [Concomitant]
     Active Substance: AMITRIPTYLINE
     Dosage: UNK
     Dates: start: 2015
  4. PREDNISONE. [Concomitant]
     Active Substance: PREDNISONE
     Dosage: UNK
     Dates: start: 201501
  5. PREGABALIN. [Concomitant]
     Active Substance: PREGABALIN
     Dosage: UNK
     Dates: start: 201507
  6. LOMOTIL [Concomitant]
     Active Substance: ATROPINE SULFATE\DIPHENOXYLATE HYDROCHLORIDE
  7. MYCOPHENOLATE MOFETIL. [Concomitant]
     Active Substance: MYCOPHENOLATE MOFETIL
     Dosage: UNK
     Dates: start: 201505
  8. UPTRAVI [Suspect]
     Active Substance: SELEXIPAG
     Dosage: UNK
     Route: 048
     Dates: start: 20170621
  9. TADALAFIL. [Concomitant]
     Active Substance: TADALAFIL
     Dosage: UNK
     Dates: start: 20150304
  10. ESOMEPRAZOLE. [Concomitant]
     Active Substance: ESOMEPRAZOLE MAGNESIUM
     Dosage: UNK
     Dates: start: 2016
  11. TAMSULOSIN [Concomitant]
     Active Substance: TAMSULOSIN
  12. DIPHENOXYLATE/ATROPINE [Concomitant]
     Active Substance: ATROPINE\DIPHENOXYLATE
  13. AMBRISENTAN [Concomitant]
     Active Substance: AMBRISENTAN
     Dosage: UNK
     Dates: start: 20150304
  14. ALLOPURINOL. [Concomitant]
     Active Substance: ALLOPURINOL
     Dosage: UNK
     Dates: start: 2015
  15. METOLAZONE. [Concomitant]
     Active Substance: METOLAZONE
     Dosage: UNK
     Dates: start: 201703
  16. ASPIRIN. [Concomitant]
     Active Substance: ASPIRIN
  17. ALENDRONATE [Concomitant]
     Active Substance: ALENDRONATE SODIUM
     Dosage: UNK
     Dates: start: 2015
  18. FOLIC ACID. [Concomitant]
     Active Substance: FOLIC ACID
  19. FUROSEMIDE. [Concomitant]
     Active Substance: FUROSEMIDE
     Dosage: UNK
     Dates: start: 201503
  20. NIFEDIPINE. [Concomitant]
     Active Substance: NIFEDIPINE
  21. SPIRONOLACTONE. [Concomitant]
     Active Substance: SPIRONOLACTONE
     Dosage: UNK
     Dates: start: 201505
  22. OXYGEN. [Concomitant]
     Active Substance: OXYGEN
     Dosage: 3 L, UNK
     Route: 045

REACTIONS (25)
  - Atrial fibrillation [Unknown]
  - Culture urine positive [Unknown]
  - Pain [Unknown]
  - Dyspnoea [Recovering/Resolving]
  - Chest discomfort [Recovered/Resolved]
  - Kidney infection [Recovering/Resolving]
  - Dehydration [Recovering/Resolving]
  - Atrial flutter [Unknown]
  - Fatigue [Unknown]
  - Heart rate irregular [Unknown]
  - Cardiac ablation [Unknown]
  - White blood cell count increased [Not Recovered/Not Resolved]
  - Acute kidney injury [Recovering/Resolving]
  - Tachycardia [Recovered/Resolved]
  - Delirium [Unknown]
  - Cardiorenal syndrome [Recovering/Resolving]
  - Cardiogenic shock [Recovered/Resolved]
  - Weight increased [Unknown]
  - Blood creatinine increased [Recovering/Resolving]
  - Catheterisation cardiac [Recovered/Resolved]
  - Back pain [Unknown]
  - Condition aggravated [Unknown]
  - Renal impairment [Unknown]
  - Hypoxia [Unknown]
  - Hypotension [Unknown]

NARRATIVE: CASE EVENT DATE: 20170816
